FAERS Safety Report 6074465-6 (Version None)
Quarter: 2009Q1

REPORT INFORMATION
  Report Type: 
  Country: None (occurrence: None)
  Receive Date: 20090206
  Receipt Date: 20090129
  Transmission Date: 20090719
  Serious: Yes (Death, Hospitalization)
  Sender: FDA-Public Use
  Company Number: 1000003477

PATIENT
  Age: 83 Year
  Sex: Female

DRUGS (1)
  1. MEMANTINE HCL [Suspect]
     Indication: DEMENTIA ALZHEIMER'S TYPE
     Dosage: 20 MG (20 MG, 1 IN 1 D), ORAL
     Route: 048
     Dates: start: 20070515, end: 20081225

REACTIONS (15)
  - APNOEA [None]
  - COLON CANCER [None]
  - DECREASED ACTIVITY [None]
  - DELIRIUM [None]
  - EPISTAXIS [None]
  - HAEMATOCRIT DECREASED [None]
  - HAEMOGLOBIN DECREASED [None]
  - HEPATIC CANCER METASTATIC [None]
  - INSOMNIA [None]
  - OCCULT BLOOD POSITIVE [None]
  - OEDEMA [None]
  - PLEURAL EFFUSION [None]
  - RESTLESSNESS [None]
  - SEPSIS [None]
  - URINE OUTPUT DECREASED [None]
